FAERS Safety Report 6554643-X (Version None)
Quarter: 2010Q1

REPORT INFORMATION
  Report Type: 
  Country: None (occurrence: None)
  Receive Date: 20100127
  Receipt Date: 20100125
  Transmission Date: 20100710
  Serious: Yes (Other)
  Sender: FDA-Public Use
  Company Number: US-PFIZER INC-2008099481

PATIENT
  Sex: Female
  Weight: 86.168 kg

DRUGS (15)
  1. DILANTIN-125 [Suspect]
     Indication: CONVULSION
     Dosage: UNK
     Dates: start: 19850101
  2. LYRICA [Suspect]
     Indication: PARTIAL SEIZURES
     Dosage: UNK
     Dates: start: 20080701
  3. LYRICA [Suspect]
     Indication: PAIN
  4. LAMICTAL [Suspect]
     Indication: CONVULSION
     Dosage: UNK
     Dates: start: 20020101
  5. KEPPRA [Suspect]
     Indication: CONVULSION
     Dosage: UNK
     Route: 048
     Dates: start: 20080301
  6. METHADOSE [Suspect]
     Dosage: UNK
     Dates: start: 19980101
  7. PHENYTOIN [Suspect]
     Indication: GRAND MAL CONVULSION
     Dosage: 100 MG, 3X/DAY
     Dates: start: 20090401
  8. IBUPROFEN [Concomitant]
  9. FLEXERIL [Concomitant]
     Dosage: UNK
  10. PREVACID [Concomitant]
     Dosage: UNK
  11. ANTACID TAB [Concomitant]
     Dosage: UNK
  12. CLONAZEPAM [Concomitant]
     Dosage: 1 MG, 1X/DAY
     Route: 048
     Dates: start: 20080401
  13. KEFLEX [Concomitant]
     Indication: URINARY TRACT INFECTION
     Dosage: 500 MG, 3X/DAY
     Route: 048
  14. VITAMIN B COMPLEX CAP [Concomitant]
     Dosage: UNK
     Route: 048
  15. CALCIUM WITH VITAMIN D [Concomitant]
     Dosage: UNK
     Route: 048

REACTIONS (38)
  - ARTHRITIS [None]
  - ATAXIA [None]
  - BRONCHITIS [None]
  - CERVICAL VERTEBRAL FRACTURE [None]
  - CONVULSION [None]
  - COUGH [None]
  - DIPLOPIA [None]
  - DIZZINESS [None]
  - DRUG INEFFECTIVE [None]
  - FATIGUE [None]
  - GALLBLADDER DISORDER [None]
  - GASTROOESOPHAGEAL REFLUX DISEASE [None]
  - GINGIVAL EROSION [None]
  - HERPES VIRUS INFECTION [None]
  - INFLUENZA [None]
  - INJURY [None]
  - IRRITABLE BOWEL SYNDROME [None]
  - LIVER DISORDER [None]
  - LOSS OF CONSCIOUSNESS [None]
  - MEMORY IMPAIRMENT [None]
  - MIGRAINE [None]
  - MUSCLE INJURY [None]
  - MUSCLE TWITCHING [None]
  - MUSCULAR WEAKNESS [None]
  - NERVE INJURY [None]
  - OEDEMA [None]
  - OSTEOPOROSIS [None]
  - PALPITATIONS [None]
  - PEPTIC ULCER [None]
  - POLYP [None]
  - SINUSITIS [None]
  - SKIN DISORDER [None]
  - SOMNOLENCE [None]
  - TOOTH FRACTURE [None]
  - TREMOR [None]
  - URINARY TRACT INFECTION [None]
  - VISION BLURRED [None]
  - WEIGHT INCREASED [None]
